FAERS Safety Report 23486938 (Version 2)
Quarter: 2024Q1

REPORT INFORMATION
  Report Type: Spontaneous
  Country: US (occurrence: US)
  Receive Date: 20240206
  Receipt Date: 20240327
  Transmission Date: 20240409
  Serious: Yes (Other)
  Sender: FDA-Public Use
  Company Number: US-PFIZER INC-202400027416

PATIENT
  Age: 73 Year
  Sex: Female
  Weight: 62.6 kg

DRUGS (1)
  1. ESTRING [Suspect]
     Active Substance: ESTRADIOL
     Indication: Urinary tract infection
     Dosage: 7.5 MG, [2MG RING]
     Dates: start: 2019

REACTIONS (3)
  - Arthritis [Unknown]
  - Cystocele [Unknown]
  - Off label use [Unknown]

NARRATIVE: CASE EVENT DATE: 20190101
